FAERS Safety Report 9926252 (Version 2)
Quarter: 2014Q1

REPORT INFORMATION
  Report Type: Spontaneous
  Country: US (occurrence: US)
  Receive Date: 20140226
  Receipt Date: 20140226
  Transmission Date: 20141002
  Serious: Yes (Hospitalization, Other)
  Sender: FDA-Public Use
  Company Number: US-US-EMD SERONO, INC.-7008235

PATIENT
  Age: 49 Year
  Sex: Female
  Weight: 95 kg

DRUGS (5)
  1. REBIF [Suspect]
     Indication: MULTIPLE SCLEROSIS
     Route: 058
     Dates: start: 2002, end: 201006
  2. TIZANIDINE [Concomitant]
     Indication: MULTIPLE SCLEROSIS
     Route: 048
  3. BACLOFEN [Concomitant]
     Indication: MULTIPLE SCLEROSIS
  4. GABAPENTIN [Concomitant]
     Route: 048
  5. ARIMIDEX [Concomitant]
     Indication: BREAST CANCER

REACTIONS (8)
  - Type 2 diabetes mellitus [Unknown]
  - Wound infection staphylococcal [Recovered/Resolved]
  - Skin disorder [Unknown]
  - Blister [Unknown]
  - Injection site ulcer [Not Recovered/Not Resolved]
  - Injection site mass [Not Recovered/Not Resolved]
  - Injection site erythema [Recovered/Resolved]
  - Hypersensitivity [Unknown]
